FAERS Safety Report 7862489-5 (Version None)
Quarter: 2011Q4

REPORT INFORMATION
  Report Type: 
  Country: None (occurrence: None)
  Receive Date: 20111027
  Receipt Date: 20101103
  Transmission Date: 20120403
  Serious: No
  Sender: FDA-Public Use
  Company Number: US-AMGEN-KDL256884

PATIENT
  Age: 60 Year
  Sex: Female

DRUGS (2)
  1. ENBREL [Suspect]
     Indication: RHEUMATOID ARTHRITIS
     Dosage: 50 MG, QWK
     Route: 058
     Dates: start: 20071212
  2. ENBREL [Suspect]
     Dosage: 50 MG, QWK
     Dates: start: 20071201

REACTIONS (11)
  - LACRIMATION INCREASED [None]
  - ASTHMA [None]
  - EYE IRRITATION [None]
  - MUSCULAR WEAKNESS [None]
  - INJECTION SITE PRURITUS [None]
  - HYPOAESTHESIA [None]
  - SINUSITIS [None]
  - INJECTION SITE ERYTHEMA [None]
  - DECREASED APPETITE [None]
  - BRONCHITIS [None]
  - INFECTION [None]
